FAERS Safety Report 6971770-3 (Version None)
Quarter: 2010Q3

REPORT INFORMATION
  Report Type: 
  Country: None (occurrence: None)
  Receive Date: 20100908
  Receipt Date: 20100827
  Transmission Date: 20110219
  Serious: Yes (Death, Other)
  Sender: FDA-Public Use
  Company Number: US-AMGEN-QUU434837

PATIENT
  Sex: Male
  Weight: 77.6 kg

DRUGS (2)
  1. NPLATE [Suspect]
     Indication: IDIOPATHIC THROMBOCYTOPENIC PURPURA
     Dates: start: 20090529, end: 20100315
  2. IRON [Concomitant]
     Route: 042
     Dates: start: 20100317

REACTIONS (14)
  - ACUTE MYELOID LEUKAEMIA [None]
  - BENIGN PROSTATIC HYPERPLASIA [None]
  - CONTUSION [None]
  - COOMBS NEGATIVE HAEMOLYTIC ANAEMIA [None]
  - DRUG INEFFECTIVE [None]
  - DYSURIA [None]
  - HEADACHE [None]
  - JAUNDICE [None]
  - LEUKOCYTOSIS [None]
  - MYELODYSPLASTIC SYNDROME [None]
  - PETECHIAE [None]
  - RENAL FAILURE CHRONIC [None]
  - THERMAL BURN [None]
  - THROMBOCYTOPENIA [None]
